FAERS Safety Report 7677563-6 (Version None)
Quarter: 2011Q3

REPORT INFORMATION
  Report Type: 
  Country: None (occurrence: None)
  Receive Date: 20110811
  Receipt Date: 20110811
  Transmission Date: 20111222
  Serious: Yes (Hospitalization)
  Sender: FDA-Public Use
  Company Number: None

PATIENT
  Sex: Female
  Weight: 39.916 kg

DRUGS (1)
  1. SUNITINIB MALATE [Suspect]
     Indication: METASTASES TO CENTRAL NERVOUS SYSTEM
     Dosage: 25 MG
     Route: 048
     Dates: start: 20110622, end: 20110720

REACTIONS (2)
  - DIARRHOEA [None]
  - HAEMATOCHEZIA [None]
